FAERS Safety Report 23371226 (Version 1)
Quarter: 2024Q1

REPORT INFORMATION
  Report Type: Spontaneous
  Country: US (occurrence: US)
  Receive Date: 20240105
  Receipt Date: 20240105
  Transmission Date: 20240409
  Serious: Yes (Other)
  Sender: FDA-Public Use
  Company Number: US-AMRING PHARMACEUTICALS INC.-2023US004673

PATIENT

DRUGS (1)
  1. MESALAMINE RECTAL [Suspect]
     Active Substance: MESALAMINE
     Indication: Colitis ulcerative
     Dosage: UNK
     Route: 065

REACTIONS (8)
  - Myopericarditis [Unknown]
  - Myocardial oedema [Unknown]
  - Chest pain [Unknown]
  - Dyspnoea [Unknown]
  - Pyrexia [Unknown]
  - Palpitations [Unknown]
  - Troponin increased [Unknown]
  - Left ventricular dysfunction [Unknown]
